FAERS Safety Report 20186810 (Version 1)
Quarter: 2021Q4

REPORT INFORMATION
  Report Type: Spontaneous
  Country: US (occurrence: US)
  Receive Date: 20211215
  Receipt Date: 20211215
  Transmission Date: 20220303
  Serious: No
  Sender: FDA-Public Use
  Company Number: US-GLAXOSMITHKLINE-US2021AMR254531

PATIENT
  Age: 87 Year
  Sex: Female

DRUGS (1)
  1. SOTROVIMAB [Suspect]
     Active Substance: SOTROVIMAB
     Indication: Product used for unknown indication
     Dosage: UNK
     Dates: start: 20211210

REACTIONS (3)
  - Asthenia [Not Recovered/Not Resolved]
  - Chills [Recovered/Resolved]
  - Nausea [Recovered/Resolved]

NARRATIVE: CASE EVENT DATE: 20211210
